FAERS Safety Report 9271421 (Version 3)
Quarter: 2013Q2

REPORT INFORMATION
  Report Type: Spontaneous
  Country: IT (occurrence: IT)
  Receive Date: 20130506
  Receipt Date: 20130607
  Transmission Date: 20140414
  Serious: Yes (Hospitalization)
  Sender: FDA-Public Use
  Company Number: IT-PFIZER INC-2013138408

PATIENT
  Age: 27 Year
  Sex: Female

DRUGS (3)
  1. XANAX [Suspect]
     Dosage: 15 ML, SINGLE
     Route: 048
     Dates: start: 20130426, end: 20130426
  2. PALEXIA [Suspect]
     Dosage: 500 MG (10 TABLETS OF 50 MG)  SINGLE
     Route: 048
     Dates: start: 20130426, end: 20130426
  3. SEROQUEL [Suspect]
     Dosage: 900 MG (9 TABLETS OF 100 MG), SINGLE
     Route: 048
     Dates: start: 20130426, end: 20130426

REACTIONS (7)
  - Intentional self-injury [Recovered/Resolved]
  - Sopor [Recovered/Resolved]
  - Bradykinesia [Recovered/Resolved]
  - Bradyphrenia [Recovered/Resolved]
  - Hypertonia [Recovered/Resolved]
  - Vomiting [Recovered/Resolved]
  - Pyrexia [Recovered/Resolved]
